FAERS Safety Report 10195584 (Version 1)
Quarter: 2014Q2

REPORT INFORMATION
  Report Type: Spontaneous
  Country: FR (occurrence: FR)
  Receive Date: 20140527
  Receipt Date: 20140527
  Transmission Date: 20141212
  Serious: Yes (Other)
  Sender: FDA-Public Use
  Company Number: FR-JNJFOC-20140513557

PATIENT
  Sex: 0

DRUGS (1)
  1. KETOCONAZOLE [Suspect]
     Indication: PITUITARY-DEPENDENT CUSHING^S SYNDROME
     Route: 065

REACTIONS (16)
  - Hepatotoxicity [Unknown]
  - Neutropenia [Unknown]
  - Blood creatinine increased [Unknown]
  - Hepatic enzyme increased [Recovered/Resolved]
  - Adrenal insufficiency [Unknown]
  - Drug ineffective [Unknown]
  - Gastrointestinal disorder [Unknown]
  - Drug tolerance decreased [Unknown]
  - Pruritus [Unknown]
  - Fatigue [Unknown]
  - Alopecia [Unknown]
  - Oedema peripheral [Unknown]
  - Myalgia [Unknown]
  - Dyspnoea [Unknown]
  - Hypertriglyceridaemia [Unknown]
  - Dizziness [Unknown]
